FAERS Safety Report 9868443 (Version 1)
Quarter: 2014Q1

REPORT INFORMATION
  Report Type: Spontaneous
  Country: IT (occurrence: IT)
  Receive Date: 20140204
  Receipt Date: 20140204
  Transmission Date: 20141002
  Serious: Yes (Hospitalization)
  Sender: FDA-Public Use
  Company Number: PHHY2014IT011878

PATIENT
  Age: 82 Year
  Sex: Male

DRUGS (1)
  1. LORAZEPAM [Suspect]
     Dosage: UNK
     Route: 048
     Dates: end: 20131228

REACTIONS (5)
  - Bradykinesia [Recovering/Resolving]
  - Drop attacks [Recovering/Resolving]
  - Presyncope [Recovering/Resolving]
  - Bradyphrenia [Recovering/Resolving]
  - Confusional state [Recovering/Resolving]
